FAERS Safety Report 6112977-7 (Version None)
Quarter: 2009Q1

REPORT INFORMATION
  Report Type: 
  Country: None (occurrence: None)
  Receive Date: 20090312
  Receipt Date: 20090305
  Transmission Date: 20090719
  Serious: Yes (Hospitalization, Congenital Anomaly)
  Sender: FDA-Public Use
  Company Number: A0680332A

PATIENT
  Sex: Female
  Weight: 3.7 kg

DRUGS (7)
  1. PAXIL [Suspect]
     Indication: ANXIETY
     Dates: start: 19960101, end: 20020101
  2. ZITHROMAX [Concomitant]
  3. CEPHALEXIN [Concomitant]
  4. VITAMIN TAB [Concomitant]
  5. FLAGYL [Concomitant]
  6. DIGOXIN [Concomitant]
  7. TERBUTALINE SULFATE [Concomitant]

REACTIONS (5)
  - ATRIAL FLUTTER [None]
  - ATRIAL SEPTAL DEFECT [None]
  - DRUG EXPOSURE DURING PREGNANCY [None]
  - MULTIPLE CONGENITAL ABNORMALITIES [None]
  - PULMONARY VALVE INCOMPETENCE [None]
